FAERS Safety Report 16441258 (Version 3)
Quarter: 2019Q3

REPORT INFORMATION
  Report Type: Spontaneous
  Country: US (occurrence: US)
  Receive Date: 20190617
  Receipt Date: 20190729
  Transmission Date: 20191004
  Serious: No
  Sender: FDA-Public Use
  Company Number: US-ASTRAZENECA-2019SE83137

PATIENT
  Sex: Female
  Weight: 74.8 kg

DRUGS (4)
  1. HUMALOG [Concomitant]
     Active Substance: INSULIN LISPRO
     Indication: DIABETES MELLITUS
     Dosage: FOUR TIMES A DAY
  2. BYDUREON BCISE [Suspect]
     Active Substance: EXENATIDE
     Indication: TYPE 2 DIABETES MELLITUS
     Route: 058
     Dates: start: 20190530
  3. TRESIBA [Concomitant]
     Active Substance: INSULIN DEGLUDEC
     Indication: DIABETES MELLITUS
     Dosage: DAILY
  4. PREDNISONE. [Concomitant]
     Active Substance: PREDNISONE
     Indication: CYSTITIS

REACTIONS (7)
  - Device leakage [Unknown]
  - Injection site mass [Unknown]
  - Injection site bruising [Recovered/Resolved]
  - Wrong technique in device usage process [Unknown]
  - Injection site haemorrhage [Unknown]
  - Intentional device misuse [Unknown]
  - Device malfunction [Unknown]
